FAERS Safety Report 9970647 (Version 1)
Quarter: 2014Q1

REPORT INFORMATION
  Report Type: Spontaneous
  Country: US (occurrence: None)
  Receive Date: 20140305
  Receipt Date: 20140305
  Transmission Date: 20141002
  Serious: Yes (Life-Threatening)
  Sender: FDA-Public Use
  Company Number: None

PATIENT
  Age: 55 Year
  Sex: Male
  Weight: 178.72 kg

DRUGS (1)
  1. ANCEF [Suspect]
     Indication: CELLULITIS
     Route: 042
     Dates: start: 20140224

REACTIONS (2)
  - Anaphylactic shock [None]
  - Apallic syndrome [None]
